FAERS Safety Report 6732056-5 (Version None)
Quarter: 2010Q2

REPORT INFORMATION
  Report Type: 
  Country: None (occurrence: None)
  Receive Date: 20100519
  Receipt Date: 20100512
  Transmission Date: 20101027
  Serious: Yes (Hospitalization)
  Sender: FDA-Public Use
  Company Number: TW-ELI_LILLY_AND_COMPANY-TW201005000128

PATIENT
  Sex: Female
  Weight: 61 kg

DRUGS (11)
  1. CHK-1 INHIBITOR I (LY2603618) [Suspect]
     Indication: NON-SMALL CELL LUNG CANCER METASTATIC
     Dosage: 150 MG/M2, UNK
     Route: 042
     Dates: start: 20100427
  2. PEMETREXED [Suspect]
     Indication: NON-SMALL CELL LUNG CANCER METASTATIC
     Dosage: 500 MG/M2, UNK
     Route: 042
     Dates: start: 20100426
  3. FOLIC ACID [Concomitant]
     Indication: PREMEDICATION
     Dates: start: 20100421
  4. VITAMIN B-12 [Concomitant]
     Indication: PREMEDICATION
     Dates: start: 20100421, end: 20100421
  5. CORTICOSTEROID NOS [Concomitant]
     Indication: PREMEDICATION
     Dates: start: 20100425, end: 20100427
  6. CODEINE SULFATE [Concomitant]
     Indication: COUGH
     Dates: start: 20100424
  7. GLIBENCLAMIDE [Concomitant]
     Indication: DIABETES MELLITUS
  8. ATENOLOL [Concomitant]
     Indication: HYPERTENSION
     Dates: start: 20100424
  9. FUROSEMIDE [Concomitant]
     Indication: HYPERTENSION
     Dates: start: 20100425
  10. SPIRONOLACTONE [Concomitant]
     Indication: HYPERTENSION
     Dates: start: 20100424
  11. MAGNESIUM OXIDE [Concomitant]
     Indication: CONSTIPATION
     Dates: start: 20100424

REACTIONS (1)
  - SEPSIS [None]
